FAERS Safety Report 8965875 (Version 1)
Quarter: 2012Q4

REPORT INFORMATION
  Report Type: Spontaneous
  Country: US (occurrence: None)
  Receive Date: 20121213
  Receipt Date: 20121213
  Transmission Date: 20130627
  Serious: No
  Sender: FDA-Public Use
  Company Number: None

PATIENT
  Sex: Female

DRUGS (1)
  1. ENBREL 50 MG/ML AMGEN [Suspect]
     Indication: RHEUMATOID ARTHRITIS
     Dosage: 50MG QWEEK SQ
     Route: 058
     Dates: start: 20120817

REACTIONS (4)
  - Hot flush [None]
  - Back pain [None]
  - Gingival pain [None]
  - Chest pain [None]
